FAERS Safety Report 17384709 (Version 1)
Quarter: 2020Q1

REPORT INFORMATION
  Report Type: Spontaneous
  Country: US (occurrence: US)
  Receive Date: 20200206
  Receipt Date: 20200206
  Transmission Date: 20200409
  Serious: No
  Sender: FDA-Public Use
  Company Number: US-ABBVIE-19K-163-3005356-00

PATIENT
  Age: 62 Year
  Sex: Female
  Weight: 53.57 kg

DRUGS (2)
  1. PREDNISONE. [Concomitant]
     Active Substance: PREDNISONE
     Indication: RHEUMATOID ARTHRITIS
  2. HUMIRA [Suspect]
     Active Substance: ADALIMUMAB
     Indication: RHEUMATOID ARTHRITIS
     Route: 058
     Dates: start: 20190707

REACTIONS (9)
  - Injection site haemorrhage [Recovered/Resolved]
  - Unevaluable event [Unknown]
  - Incorrect dose administered [Unknown]
  - Arthritis [Not Recovered/Not Resolved]
  - Injection site injury [Unknown]
  - Wrong technique in product usage process [Unknown]
  - Anger [Unknown]
  - Needle track marks [Recovered/Resolved]
  - Weight decreased [Unknown]

NARRATIVE: CASE EVENT DATE: 2019
